FAERS Safety Report 5642732-3 (Version None)
Quarter: 2008Q1

REPORT INFORMATION
  Report Type: 
  Country: None (occurrence: None)
  Receive Date: 20080131
  Receipt Date: 20071217
  Transmission Date: 20080703
  Serious: Yes (Other)
  Sender: FDA-Public Use
  Company Number: PHEH2007US15203

PATIENT
  Age: 58 Year
  Sex: Male
  Weight: 124.7 kg

DRUGS (1)
  1. TEKTURNA [Suspect]
     Dosage: 150 MG,QD, ORAL
     Route: 048
     Dates: start: 20070901, end: 20071101

REACTIONS (1)
  - ANGIOEDEMA [None]
